FAERS Safety Report 6284162-X (Version None)
Quarter: 2009Q3

REPORT INFORMATION
  Report Type: 
  Country: None (occurrence: None)
  Receive Date: 20090723
  Receipt Date: 20090709
  Transmission Date: 20100115
  Serious: Yes (Other)
  Sender: FDA-Public Use
  Company Number: 8048863

PATIENT
  Sex: Female
  Weight: 73.9 kg

DRUGS (6)
  1. KEPPRA [Suspect]
     Indication: CONVULSION
     Dosage: 750 MG 2/D PO
     Route: 048
     Dates: start: 20090501
  2. KEPPRA [Suspect]
     Indication: CONVULSION
     Dosage: 1500 MG /D PO
     Route: 048
     Dates: start: 20090501
  3. KEPPRA [Suspect]
     Indication: CONVULSION
     Dosage: 750 MG 2/D PO
     Route: 048
     Dates: start: 20060101, end: 20090101
  4. KEPPRA [Suspect]
     Indication: CONVULSION
     Dosage: 1500 MG /D PO
     Route: 048
     Dates: start: 20060101, end: 20090101
  5. ZONEGRAN [Concomitant]
  6. LACOSAMIDE [Concomitant]

REACTIONS (4)
  - APHASIA [None]
  - CONVULSION [None]
  - GAIT DISTURBANCE [None]
  - HAEMORRHAGE [None]
